FAERS Safety Report 8021146-5 (Version None)
Quarter: 2012Q1

REPORT INFORMATION
  Report Type: 
  Country: None (occurrence: None)
  Receive Date: 20120104
  Receipt Date: 20111230
  Transmission Date: 20120608
  Serious: No
  Sender: FDA-Public Use
  Company Number: US-PFIZER INC-2011317524

PATIENT
  Sex: Male
  Weight: 86.168 kg

DRUGS (2)
  1. ADVIL PM [Suspect]
     Indication: STRESS
  2. ADVIL PM [Suspect]
     Indication: SLEEP DISORDER
     Dosage: UNK, AS NEEDED
     Dates: start: 20111223, end: 20111229

REACTIONS (4)
  - HEAD INJURY [None]
  - SCREAMING [None]
  - FALL [None]
  - NIGHTMARE [None]
